FAERS Safety Report 8499182-4 (Version None)
Quarter: 2012Q2

REPORT INFORMATION
  Report Type: 
  Country: None (occurrence: None)
  Receive Date: 20120405
  Receipt Date: 20100722
  Transmission Date: 20120825
  Serious: Yes (Disabling)
  Sender: FDA-Public Use
  Company Number: PHHY2010US44432

PATIENT
  Age: 72 Year
  Sex: Female
  Weight: 63.5 kg

DRUGS (1)
  1. RECLAST [Suspect]
     Indication: OSTEOPOROSIS
     Dosage: 5 MG/ YEAR, INTRAVENOUS
     Route: 042
     Dates: start: 20100629

REACTIONS (6)
  - BACK PAIN [None]
  - JOINT SWELLING [None]
  - ARTHRALGIA [None]
  - ABASIA [None]
  - PAIN [None]
  - HYPOKINESIA [None]
